FAERS Safety Report 8525094-3 (Version None)
Quarter: 2012Q3

REPORT INFORMATION
  Report Type: 
  Country: None (occurrence: None)
  Receive Date: 20120720
  Receipt Date: 20120711
  Transmission Date: 20120928
  Serious: Yes (Hospitalization)
  Sender: FDA-Public Use
  Company Number: BR-ASTRAZENECA-2012SE48590

PATIENT
  Age: 790 Month
  Sex: Male
  Weight: 82 kg

DRUGS (3)
  1. OMEPRAZOLE [Suspect]
     Route: 048
     Dates: start: 20111101
  2. ATACAND HCT [Suspect]
     Indication: HYPERTENSION
     Dosage: 16/12.5 MG DAILY
     Route: 048
     Dates: start: 20060101, end: 20120711
  3. BRILINTA [Suspect]
     Indication: MYOCARDIAL INFARCTION
     Route: 048
     Dates: start: 20111101, end: 20120711

REACTIONS (4)
  - MALAISE [None]
  - MYOCARDIAL INFARCTION [None]
  - BLOOD PRESSURE INCREASED [None]
  - HEADACHE [None]
